FAERS Safety Report 10765818 (Version 1)
Quarter: 2015Q1

REPORT INFORMATION
  Report Type: Spontaneous
  Country: PL (occurrence: PL)
  Receive Date: 20150205
  Receipt Date: 20150205
  Transmission Date: 20150721
  Serious: Yes (Other)
  Sender: FDA-Public Use
  Company Number: PL-ASTRAZENECA-2015SE09936

PATIENT
  Sex: Male

DRUGS (2)
  1. TIKAGRELOR [Suspect]
     Active Substance: TICAGRELOR
     Route: 048
  2. ABCIKSIMAB [Concomitant]

REACTIONS (1)
  - Thrombosis in device [Unknown]
